FAERS Safety Report 7792046-0 (Version None)
Quarter: 2011Q4

REPORT INFORMATION
  Report Type: 
  Country: None (occurrence: None)
  Receive Date: 20111003
  Receipt Date: 20110930
  Transmission Date: 20120403
  Serious: Yes (Other)
  Sender: FDA-Public Use
  Company Number: GB-BAYER-200832210GPV

PATIENT
  Age: 29 Year
  Sex: Female

DRUGS (10)
  1. NORDETTE-28 [Suspect]
     Indication: MENORRHAGIA
     Dosage: AS USED DOSE: UNK
     Route: 048
     Dates: end: 20040820
  2. NORDETTE-28 [Interacting]
     Indication: DYSMENORRHOEA
  3. COMBIVIR [Concomitant]
     Indication: HIV INFECTION
     Dosage: 1/12 HOURS
     Route: 065
     Dates: start: 19990101
  4. MEFENAMIC ACID [Concomitant]
     Indication: DYSMENORRHOEA
  5. ETHINYL ESTRADIOL AND LEVONORGESTREL [Interacting]
     Indication: MENORRHAGIA
  6. NEVIRAPINE [Interacting]
     Indication: HIV INFECTION
     Dosage: 1/12 HOURS
     Route: 065
     Dates: start: 19990101
  7. MEFENAMIC ACID [Concomitant]
     Indication: MENORRHAGIA
     Route: 065
  8. ETHINYL ESTRADIOL AND LEVONORGESTREL [Interacting]
     Indication: DYSMENORRHOEA
     Route: 048
     Dates: start: 20040428
  9. TRANEXAMIC ACID [Concomitant]
     Indication: DYSMENORRHOEA
  10. TRANEXAMIC ACID [Concomitant]
     Indication: MENORRHAGIA
     Route: 065

REACTIONS (2)
  - MENORRHAGIA [None]
  - ANAEMIA [None]
